FAERS Safety Report 8770583 (Version 1)
Quarter: 2012Q4

REPORT INFORMATION
  Report Type: 
  Country: NL (occurrence: NL)
  Receive Date: 20120907
  Receipt Date: 20120907
  Transmission Date: 20130627
  Serious: Yes (Hospitalization)
  Sender: FDA-Public Use
  Company Number: NL-TEVA-356501ISR

PATIENT
  Sex: Female

DRUGS (2)
  1. LABETALOL HCL PCH TABLET 100MG [Suspect]
     Dosage: 1 daags 1 tablet
     Route: 048
     Dates: start: 20120801
  2. FERROFUMARAAT PCH TABLET 200MG [Concomitant]
     Dosage: 3x daags 1 tab
     Route: 048
     Dates: start: 20120720

REACTIONS (2)
  - Neonatal disorder [Recovered/Resolved]
  - Exposure during breast feeding [Unknown]
